FAERS Safety Report 10790678 (Version 2)
Quarter: 2015Q1

REPORT INFORMATION
  Report Type: Report from Study
  Country: DE (occurrence: DE)
  Receive Date: 20150212
  Receipt Date: 20150306
  Transmission Date: 20150721
  Serious: Yes (Other)
  Sender: FDA-Public Use
  Company Number: DE-ABBVIE-15P-062-1344210-00

PATIENT
  Sex: Female

DRUGS (1)
  1. LEVODOPA/CARBIDOPA [Suspect]
     Active Substance: CARBIDOPA\LEVODOPA
     Indication: PARKINSON^S DISEASE
     Dosage: MD 8.5 MLCRD 2.9 ML/HED 1.0 ML
     Route: 050
     Dates: start: 20130621

REACTIONS (2)
  - Knee arthroplasty [Not Recovered/Not Resolved]
  - Adverse event [Unknown]
